FAERS Safety Report 15496064 (Version 1)
Quarter: 2018Q4

REPORT INFORMATION
  Report Type: Report from Study
  Country: ES (occurrence: ES)
  Receive Date: 20181012
  Receipt Date: 20181012
  Transmission Date: 20190205
  Serious: Yes (Hospitalization)
  Sender: FDA-Public Use
  Company Number: ES-SA-2018SA278342

PATIENT
  Age: 67 Year
  Sex: Female

DRUGS (6)
  1. ENOXAPARIN SODIUM. [Suspect]
     Active Substance: ENOXAPARIN SODIUM
     Dosage: 40 MG, Q12H
     Route: 058
     Dates: start: 20180317
  2. BROMAZEPAM [Concomitant]
     Active Substance: BROMAZEPAM
     Dosage: 1.5 MG, QD (AT DINNER)
     Route: 048
     Dates: start: 20180317
  3. OMEPRAZOL [OMEPRAZOLE] [Concomitant]
     Dosage: 20 MG, QD
     Route: 048
     Dates: start: 20180317
  4. PARACETAMOL [Concomitant]
     Active Substance: ACETAMINOPHEN
     Dosage: UNK, Q8H (1GR/8H)
     Route: 042
     Dates: start: 20180317
  5. AMITRIPTILINA [AMITRIPTYLINE] [Concomitant]
     Dosage: 25 MG, QD
     Route: 048
     Dates: start: 20180317
  6. METAMIZOLE SODIUM [Concomitant]
     Active Substance: METAMIZOLE SODIUM
     Dosage: UNK UNK, Q8H
     Route: 042
     Dates: start: 20180317

REACTIONS (1)
  - Anaemia [Recovered/Resolved]

NARRATIVE: CASE EVENT DATE: 20180323
